FAERS Safety Report 6369915-1 (Version None)
Quarter: 2009Q3

REPORT INFORMATION
  Report Type: 
  Country: None (occurrence: None)
  Receive Date: 20090923
  Receipt Date: 20081014
  Transmission Date: 20100115
  Serious: Yes (Other)
  Sender: FDA-Public Use
  Company Number: US-ASTRAZENECA-2006UW11272

PATIENT
  Age: 40 Year
  Sex: Female
  Weight: 108.9 kg

DRUGS (14)
  1. SEROQUEL [Suspect]
     Indication: SCHIZOPHRENIA
     Route: 048
     Dates: start: 20010101, end: 20030101
  2. SEROQUEL [Suspect]
     Indication: BIPOLAR DISORDER
     Route: 048
     Dates: start: 20010101, end: 20030101
  3. SEROQUEL [Suspect]
     Indication: DEPRESSION
     Route: 048
     Dates: start: 20010101, end: 20030101
  4. SEROQUEL [Suspect]
     Route: 048
     Dates: start: 20040921
  5. SEROQUEL [Suspect]
     Route: 048
     Dates: start: 20040921
  6. SEROQUEL [Suspect]
     Route: 048
     Dates: start: 20040921
  7. ZYPREXA [Suspect]
  8. RISPERDAL [Concomitant]
     Route: 048
  9. REMERON [Concomitant]
     Route: 048
  10. DIPHENHYDRAMINE HCL [Concomitant]
     Route: 048
  11. NEO-POLYMYXIN [Concomitant]
     Route: 061
  12. AMOXICILLIN [Concomitant]
     Route: 048
  13. IBUPROFEN [Concomitant]
     Route: 048
  14. DOXYCYCLINE [Concomitant]
     Route: 048

REACTIONS (2)
  - DIABETES MELLITUS [None]
  - DIABETIC KETOACIDOSIS [None]
